FAERS Safety Report 20458441 (Version 10)
Quarter: 2022Q3

REPORT INFORMATION
  Report Type: Report from Study
  Country: US (occurrence: US)
  Receive Date: 20220211
  Receipt Date: 20220714
  Transmission Date: 20221027
  Serious: Yes (Hospitalization, Other)
  Sender: FDA-Public Use
  Company Number: NVSC2022US029376

PATIENT
  Sex: Male

DRUGS (1)
  1. ENTRESTO [Suspect]
     Active Substance: SACUBITRIL\VALSARTAN
     Indication: Product used for unknown indication
     Dosage: 1 DOSAGE FORM, BID (97/103 MG)
     Route: 048

REACTIONS (11)
  - Loss of consciousness [Unknown]
  - Cholelithiasis [Unknown]
  - Peripheral artery occlusion [Unknown]
  - Hepatic enzyme increased [Unknown]
  - Illness [Unknown]
  - Blood pressure fluctuation [Recovering/Resolving]
  - Pain in extremity [Recovered/Resolved]
  - Ulcer [Unknown]
  - Gait disturbance [Recovering/Resolving]
  - Blood pressure decreased [Unknown]
  - Blood creatine increased [Unknown]
